FAERS Safety Report 4710599-3 (Version None)
Quarter: 2005Q3

REPORT INFORMATION
  Report Type: 
  Country: None (occurrence: None)
  Receive Date: 20050707
  Receipt Date: 20050620
  Transmission Date: 20060218
  Serious: Yes (Life-Threatening, Hospitalization)
  Sender: FDA-Public Use
  Company Number: EWC050543828

PATIENT
  Age: 77 Year
  Sex: Female
  Weight: 63 kg

DRUGS (21)
  1. PROZAC [Suspect]
     Indication: DEPRESSION
     Dosage: 20 MG DAY
     Dates: start: 20040430, end: 20050319
  2. ALPRAZOLAM [Concomitant]
  3. MOXIFLOXACIN [Concomitant]
  4. ... [Concomitant]
  5. .. [Concomitant]
  6. . [Concomitant]
  7. . [Concomitant]
  8. . [Concomitant]
  9. . [Concomitant]
  10. . [Concomitant]
  11. . [Concomitant]
  12. . [Concomitant]
  13. . [Concomitant]
  14. . [Concomitant]
  15. . [Concomitant]
  16. . [Concomitant]
  17. . [Concomitant]
  18. . [Concomitant]
  19. . [Concomitant]
  20. . [Concomitant]
  21. . [Concomitant]

REACTIONS (13)
  - BLOOD BICARBONATE DECREASED [None]
  - BLOOD CREATINE PHOSPHOKINASE INCREASED [None]
  - BLOOD LACTATE DEHYDROGENASE INCREASED [None]
  - BLOOD UREA INCREASED [None]
  - CHEST X-RAY ABNORMAL [None]
  - DRUG INTERACTION [None]
  - HYPOTENSION [None]
  - LABORATORY TEST ABNORMAL [None]
  - OXYGEN SATURATION DECREASED [None]
  - PANCYTOPENIA [None]
  - PCO2 DECREASED [None]
  - PROTEIN TOTAL DECREASED [None]
  - RESPIRATORY TRACT INFECTION [None]
